FAERS Safety Report 11249631 (Version 1)
Quarter: 2015Q3

REPORT INFORMATION
  Report Type: Spontaneous
  Country: US (occurrence: US)
  Receive Date: 20150708
  Receipt Date: 20150708
  Transmission Date: 20151125
  Serious: Yes (Death, Hospitalization)
  Sender: FDA-Public Use
  Company Number: US-ELI_LILLY_AND_COMPANY-US200902001319

PATIENT
  Age: 71 Year
  Sex: Male

DRUGS (7)
  1. ALISKIREN [Concomitant]
     Active Substance: ALISKIREN
  2. LASIX [Concomitant]
     Active Substance: FUROSEMIDE
  3. POTASSIUM                          /00031402/ [Concomitant]
     Active Substance: POTASSIUM
  4. METOPROLOL [Concomitant]
     Active Substance: METOPROLOL
  5. LISINOPRIL. [Concomitant]
     Active Substance: LISINOPRIL
  6. GEMZAR [Suspect]
     Active Substance: GEMCITABINE HYDROCHLORIDE
     Indication: PANCREATIC CARCINOMA
     Dosage: 1700 MG, UNK
     Dates: start: 20081020, end: 20081124
  7. LEVOXYL [Concomitant]
     Active Substance: LEVOTHYROXINE SODIUM

REACTIONS (2)
  - Oedema [Not Recovered/Not Resolved]
  - Respiratory failure [Fatal]

NARRATIVE: CASE EVENT DATE: 2009
